FAERS Safety Report 23051635 (Version 1)
Quarter: 2023Q4

REPORT INFORMATION
  Report Type: Spontaneous
  Country: US (occurrence: US)
  Receive Date: 20231010
  Receipt Date: 20231010
  Transmission Date: 20240110
  Serious: No
  Sender: FDA-Public Use
  Company Number: US-Sprout Pharmaceuticals, Inc.-2022SP000356

PATIENT
  Age: 39 Year

DRUGS (1)
  1. ADDYI [Suspect]
     Active Substance: FLIBANSERIN
     Indication: Product used for unknown indication
     Dosage: RX 7659796; RX 3635-4225-7553
     Route: 048
     Dates: start: 202211

REACTIONS (7)
  - Arthropathy [Unknown]
  - Muscle fatigue [Unknown]
  - Headache [Unknown]
  - Middle insomnia [Not Recovered/Not Resolved]
  - Drug ineffective [Unknown]
  - Somnolence [Unknown]
  - Fatigue [Unknown]

NARRATIVE: CASE EVENT DATE: 20221101
